FAERS Safety Report 7600381-1 (Version None)
Quarter: 2011Q3

REPORT INFORMATION
  Report Type: 
  Country: None (occurrence: None)
  Receive Date: 20110711
  Receipt Date: 20110629
  Transmission Date: 20111222
  Serious: Yes (Other)
  Sender: FDA-Public Use
  Company Number: US-ELI_LILLY_AND_COMPANY-US201105004148

PATIENT
  Sex: Female

DRUGS (2)
  1. FORTEO [Suspect]
     Indication: OSTEOPOROSIS
     Dosage: 20 UG, QD
     Dates: start: 20100606
  2. FORTEO [Suspect]
     Dosage: 20 UG, QD

REACTIONS (7)
  - JAW DISORDER [None]
  - CARDIAC DISORDER [None]
  - HEART VALVE INCOMPETENCE [None]
  - CHEST DISCOMFORT [None]
  - TOOTH LOSS [None]
  - ANGINA PECTORIS [None]
  - GENERAL PHYSICAL HEALTH DETERIORATION [None]
